FAERS Safety Report 18699900 (Version 1)
Quarter: 2021Q1

REPORT INFORMATION
  Report Type: Spontaneous
  Country: US (occurrence: US)
  Receive Date: 20210104
  Receipt Date: 20210104
  Transmission Date: 20210419
  Serious: Yes (Hospitalization, Other)
  Sender: FDA-Public Use
  Company Number: US-ABBVIE-20K-163-3712946-00

PATIENT
  Sex: Female
  Weight: 97.61 kg

DRUGS (1)
  1. SYNTHROID [Suspect]
     Active Substance: LEVOTHYROXINE SODIUM
     Indication: THYROID CANCER
     Route: 048
     Dates: start: 1990, end: 2014

REACTIONS (8)
  - Feeling abnormal [Recovered/Resolved]
  - Blood cholesterol increased [Unknown]
  - Alopecia [Recovered/Resolved]
  - Hypertension [Recovering/Resolving]
  - Weight increased [Recovering/Resolving]
  - Psoriatic arthropathy [Recovering/Resolving]
  - Depression [Recovering/Resolving]
  - Cataract [Not Recovered/Not Resolved]

NARRATIVE: CASE EVENT DATE: 1993
